FAERS Safety Report 6222882-3 (Version None)
Quarter: 2009Q2

REPORT INFORMATION
  Report Type: 
  Country: None (occurrence: None)
  Receive Date: 20090611
  Receipt Date: 20090604
  Transmission Date: 20091009
  Serious: Yes (Other)
  Sender: FDA-Public Use
  Company Number: CH-ROCHE-636173

PATIENT
  Age: 46 Year
  Sex: Male

DRUGS (4)
  1. BONIVA [Suspect]
     Indication: OSTEOPOROSIS
     Route: 042
     Dates: start: 20060101
  2. CALCIMAGON-D3 [Concomitant]
     Indication: OSTEOPOROSIS
     Route: 048
  3. CO-AMOXYCILLIN [Concomitant]
     Dosage: FREQUENCY: DAILY
     Route: 048
     Dates: start: 20080501
  4. DALACIN [Concomitant]
     Dosage: FREQUENCY: DAILY
     Route: 048
     Dates: start: 20090210

REACTIONS (2)
  - IMPAIRED HEALING [None]
  - OSTEONECROSIS [None]
